FAERS Safety Report 13903339 (Version 3)
Quarter: 2018Q1

REPORT INFORMATION
  Report Type: Spontaneous
  Country: US (occurrence: US)
  Receive Date: 20170824
  Receipt Date: 20180110
  Transmission Date: 20180508
  Serious: Yes (Other)
  Sender: FDA-Public Use
  Company Number: US-PFIZER INC-2017363435

PATIENT
  Age: 84 Year
  Sex: Female

DRUGS (3)
  1. ZOLOFT [Suspect]
     Active Substance: SERTRALINE HYDROCHLORIDE
     Indication: DEPRESSION
     Dosage: 25 MG, DAILY
     Route: 048
     Dates: start: 20161228, end: 20171012
  2. RISPERIDONE. [Suspect]
     Active Substance: RISPERIDONE
     Indication: DEMENTIA
     Dosage: 0.25 MG, NIGHTLY
     Route: 048
     Dates: start: 20170126
  3. RISPERIDONE. [Suspect]
     Active Substance: RISPERIDONE
     Indication: AGITATION
     Dosage: 0.25 MG, NIGHTLY, AS NEEDED

REACTIONS (7)
  - Malaise [Unknown]
  - Hyponatraemia [Recovered/Resolved]
  - Feeling abnormal [Unknown]
  - Insomnia [Unknown]
  - Somnolence [Unknown]
  - Asthenopia [Unknown]
  - Fatigue [Unknown]

NARRATIVE: CASE EVENT DATE: 201707
